FAERS Safety Report 6409429-3 (Version None)
Quarter: 2009Q4

REPORT INFORMATION
  Report Type: 
  Country: None (occurrence: None)
  Receive Date: 20091019
  Receipt Date: 20091019
  Transmission Date: 20100525
  Serious: Yes (Other)
  Sender: FDA-Public Use
  Company Number: None

PATIENT
  Age: 43 Year
  Sex: Female
  Weight: 104.3273 kg

DRUGS (2)
  1. CIPRO [Suspect]
     Indication: EAR INFECTION
  2. PAXIL [Suspect]
     Indication: DEPRESSION

REACTIONS (5)
  - CRYING [None]
  - EMOTIONAL DISTRESS [None]
  - FEAR [None]
  - FEELING ABNORMAL [None]
  - THINKING ABNORMAL [None]
